FAERS Safety Report 21795865 (Version 2)
Quarter: 2023Q1

REPORT INFORMATION
  Report Type: Spontaneous
  Country: US (occurrence: US)
  Receive Date: 20221229
  Receipt Date: 20230112
  Transmission Date: 20230418
  Serious: Yes (Other)
  Sender: FDA-Public Use
  Company Number: US-TEVA-2022-US-2839292

PATIENT
  Age: 27 Year
  Sex: Female

DRUGS (1)
  1. FLUVOXAMINE [Suspect]
     Active Substance: FLUVOXAMINE
     Indication: Obsessive-compulsive disorder
     Dosage: 200 MILLIGRAM DAILY;
     Route: 065

REACTIONS (3)
  - Weight increased [Recovered/Resolved]
  - Hyperhidrosis [Unknown]
  - Sedation [Recovering/Resolving]
